FAERS Safety Report 6745170-5 (Version None)
Quarter: 2010Q2

REPORT INFORMATION
  Report Type: 
  Country: None (occurrence: None)
  Receive Date: 20100526
  Receipt Date: 20100514
  Transmission Date: 20101027
  Serious: Yes (Hospitalization)
  Sender: FDA-Public Use
  Company Number: 7004959

PATIENT
  Age: 51 Year
  Sex: Male

DRUGS (1)
  1. REBIF [Suspect]
     Indication: DRUG USE FOR UNKNOWN INDICATION
     Dosage: 44 MCG,3 IN 1 WK, SUBCUTANEOUS
     Route: 058
     Dates: start: 20071026

REACTIONS (1)
  - INTERVERTEBRAL DISC SPACE NARROWING [None]
